FAERS Safety Report 23353012 (Version 1)
Quarter: 2023Q4

REPORT INFORMATION
  Report Type: Spontaneous
  Country: BR (occurrence: BR)
  Receive Date: 20231230
  Receipt Date: 20231230
  Transmission Date: 20240110
  Serious: Yes (Other)
  Sender: FDA-Public Use
  Company Number: BR-Accord-398472

PATIENT
  Age: 47 Year
  Sex: Female

DRUGS (1)
  1. DOCETAXEL [Suspect]
     Active Substance: DOCETAXEL\DOCETAXEL ANHYDROUS
     Indication: Breast cancer
     Dosage: STRENGTH: 20MG?SECOND INFUSION
     Route: 042

REACTIONS (5)
  - Tremor [Unknown]
  - Bradycardia [Unknown]
  - Chest discomfort [Unknown]
  - Back pain [Unknown]
  - Body temperature increased [Unknown]
